FAERS Safety Report 13912214 (Version 1)
Quarter: 2017Q3

REPORT INFORMATION
  Report Type: Spontaneous
  Country: US (occurrence: US)
  Receive Date: 20170828
  Receipt Date: 20170828
  Transmission Date: 20171127
  Serious: No
  Sender: FDA-Public Use
  Company Number: US-ROCHE-1145325

PATIENT
  Age: 29 Year
  Sex: Female
  Weight: 61.29 kg

DRUGS (3)
  1. NUTROPIN AQ [Suspect]
     Active Substance: SOMATROPIN
     Indication: GROWTH HORMONE DEFICIENCY
     Route: 058
     Dates: start: 200201, end: 20020621
  2. NUTROPIN AQ [Suspect]
     Active Substance: SOMATROPIN
     Route: 058
     Dates: start: 20010306
  3. NUTROPIN AQ [Suspect]
     Active Substance: SOMATROPIN
     Route: 058
     Dates: start: 200104, end: 200201

REACTIONS (13)
  - Back pain [Unknown]
  - Weight increased [Unknown]
  - Galactorrhoea [Unknown]
  - Constipation [Unknown]
  - Arthralgia [Unknown]
  - Insomnia [Unknown]
  - Oedema [Unknown]
  - Joint swelling [Unknown]
  - Tremor [Unknown]
  - Arthralgia [Recovering/Resolving]
  - Fatigue [Recovered/Resolved]
  - Presyncope [Unknown]
  - Malaise [Unknown]

NARRATIVE: CASE EVENT DATE: 200205
